FAERS Safety Report 8974152 (Version 2)
Quarter: 2013Q3

REPORT INFORMATION
  Report Type: Spontaneous
  Country: GB (occurrence: None)
  Receive Date: 20121213
  Receipt Date: 20130715
  Transmission Date: 20140515
  Serious: Yes (Death, Life-Threatening, Hospitalization, Other)
  Sender: FDA-Public Use
  Company Number: AUR-APL-2012-05254

PATIENT
  Age: 49 Year
  Sex: Male
  Weight: 73 kg

DRUGS (6)
  1. AMOXICILLIN AND CLAVULANIC ACID [Suspect]
     Indication: PRODUCT USED FOR UNKNOWN INDICATION
     Dosage: 1875 MG (625 MG, 3 IN 1 D)
     Dates: start: 2010
  2. NAPROXEN (NAPROXEN) [Suspect]
     Indication: PRODUCT USED FOR UNKNOWN INDICATION
     Dates: start: 20091204
  3. TRIMETHOPRIM [Suspect]
     Indication: PRODUCT USED FOR UNKNOWN INDICATION
  4. CIPRO [Suspect]
     Indication: PROSTATITIS
     Dosage: 500 MG (250 MG, 2 IN 1 D)
     Route: 048
     Dates: start: 20091123
  5. CLARITHROMYCIN (CLARITHROMYCIN) [Suspect]
     Indication: PRODUCT USED FOR UNKNOWN INDICATION
     Dates: start: 20091204
  6. OFLOXACIN [Suspect]
     Indication: PROSTATITIS
     Route: 048
     Dates: start: 20091123, end: 20100113

REACTIONS (28)
  - Balance disorder [None]
  - Tinnitus [None]
  - Hyperacusis [None]
  - Motion sickness [None]
  - Tachycardia [None]
  - Arrhythmia [None]
  - Cognitive disorder [None]
  - Anxiety [None]
  - Depression [None]
  - Panic attack [None]
  - Headache [None]
  - Neck pain [None]
  - Hypoaesthesia [None]
  - Oropharyngeal pain [None]
  - Throat tightness [None]
  - Musculoskeletal stiffness [None]
  - Dysphagia [None]
  - Speech disorder [None]
  - Fibromyalgia [None]
  - Tendonitis [None]
  - Muscle contractions involuntary [None]
  - Paraesthesia [None]
  - Dysaesthesia [None]
  - Arthralgia [None]
  - Neuralgia [None]
  - Hypersensitivity [None]
  - Pain [None]
  - Tremor [None]
